FAERS Safety Report 5424664-9 (Version None)
Quarter: 2007Q3

REPORT INFORMATION
  Report Type: 
  Country: None (occurrence: None)
  Receive Date: 20070824
  Receipt Date: 20070821
  Transmission Date: 20080115
  Serious: Yes (Other)
  Sender: FDA-Public Use
  Company Number: PHNU2007DE02911

PATIENT
  Sex: Female

DRUGS (2)
  1. ZOMETA [Suspect]
     Indication: METASTASES TO BONE
     Dosage: 4 MG, QMO
     Route: 042
     Dates: start: 20060601
  2. NEXAVAR [Concomitant]
     Route: 065
     Dates: start: 20070201

REACTIONS (6)
  - BIOPSY [None]
  - JOINT RANGE OF MOTION DECREASED [None]
  - JOINT SWELLING [None]
  - JOINT WARMTH [None]
  - NUCLEAR MAGNETIC RESONANCE IMAGING NORMAL [None]
  - PAIN IN EXTREMITY [None]
